FAERS Safety Report 21603755 (Version 1)
Quarter: 2022Q4

REPORT INFORMATION
  Report Type: Spontaneous
  Country: DE (occurrence: DE)
  Receive Date: 20221116
  Receipt Date: 20221116
  Transmission Date: 20230112
  Serious: Yes (Hospitalization, Other)
  Sender: FDA-Public Use
  Company Number: DE-ADRED-08233-01

PATIENT
  Age: 71 Year
  Sex: Female

DRUGS (1)
  1. LETROZOLE [Suspect]
     Active Substance: LETROZOLE
     Indication: Product used for unknown indication
     Dosage: REGIMEN
     Route: 065

REACTIONS (14)
  - Renal impairment [Unknown]
  - General physical health deterioration [Unknown]
  - Urosepsis [Unknown]
  - Tachypnoea [Unknown]
  - Condition aggravated [Unknown]
  - Dementia [Unknown]
  - Arrhythmia [Unknown]
  - Electrocardiogram abnormal [Unknown]
  - Electrolyte imbalance [Unknown]
  - Memory impairment [Unknown]
  - Diarrhoea [Unknown]
  - Tachycardia [Unknown]
  - Oedema peripheral [Unknown]
  - Abdominal pain [Unknown]
